FAERS Safety Report 9741342 (Version 4)
Quarter: 2014Q1

REPORT INFORMATION
  Report Type: Spontaneous
  Country: AU (occurrence: AU)
  Receive Date: 20131209
  Receipt Date: 20140204
  Transmission Date: 20141002
  Serious: Yes (Other)
  Sender: FDA-Public Use
  Company Number: ALCN2013AU006070

PATIENT
  Sex: 0
  Weight: 70 kg

DRUGS (8)
  1. BSS [Suspect]
     Dosage: 1 DF, UNK
     Route: 065
     Dates: start: 20131010, end: 20131010
  2. BSS [Suspect]
     Dosage: 1 DF, UNK
     Route: 065
     Dates: start: 20131010, end: 20131010
  3. CYCLOPENTOLATE HCL [Suspect]
     Dosage: 1 DF, UNK
     Route: 047
     Dates: start: 20131010, end: 20131010
  4. BETADINE [Concomitant]
     Dosage: 1 DF, UNK
     Route: 047
     Dates: start: 20131010, end: 20131010
  5. TROPICAMIDE [Concomitant]
     Dosage: 1 DF, UNK
     Route: 047
     Dates: start: 20131010, end: 20131010
  6. PHENYLEPHRINE HYDROCHLORIDE [Concomitant]
     Dosage: 1 DF, UNK
     Route: 047
     Dates: start: 20131010, end: 20131010
  7. ADRENALINE [Concomitant]
     Dosage: 1 DF, UNK
     Route: 065
  8. CEPHAZOLIN [Concomitant]
     Dosage: 1 MG, UNK
     Route: 065
     Dates: start: 20131010, end: 20131010

REACTIONS (1)
  - Toxic anterior segment syndrome [Recovered/Resolved]
